FAERS Safety Report 23584554 (Version 1)
Quarter: 2024Q1

REPORT INFORMATION
  Report Type: Spontaneous
  Country: NL (occurrence: NL)
  Receive Date: 20240301
  Receipt Date: 20240301
  Transmission Date: 20240410
  Serious: Yes (Other)
  Sender: FDA-Public Use
  Company Number: None

PATIENT
  Age: 37 Year
  Sex: Female
  Weight: 70 kg

DRUGS (1)
  1. PREGABALIN [Suspect]
     Active Substance: PREGABALIN
     Indication: Muscle strain
     Dosage: 2DD1T, BRAND NAME NOT SPECIFIED
     Route: 065
     Dates: start: 20231213, end: 20231215

REACTIONS (2)
  - Angioedema [Recovering/Resolving]
  - Dizziness [Recovering/Resolving]
